FAERS Safety Report 17052563 (Version 1)
Quarter: 2019Q4

REPORT INFORMATION
  Report Type: Spontaneous
  Country: US (occurrence: US)
  Receive Date: 20191119
  Receipt Date: 20191119
  Transmission Date: 20200122
  Serious: Yes (Other)
  Sender: FDA-Public Use
  Company Number: None

PATIENT
  Age: 70 Year
  Sex: Female
  Weight: 60.75 kg

DRUGS (2)
  1. NATURE-THROID [Suspect]
     Active Substance: THYROID, PORCINE
     Indication: AUTOIMMUNE THYROIDITIS
     Route: 048
  2. AMLODIPINE 2.5MG [Concomitant]
     Active Substance: AMLODIPINE BESYLATE
     Dates: start: 19990601

REACTIONS (7)
  - Drug ineffective [None]
  - Suspected counterfeit product [None]
  - Disease recurrence [None]
  - Product taste abnormal [None]
  - Product quality issue [None]
  - Product colour issue [None]
  - Product odour abnormal [None]

NARRATIVE: CASE EVENT DATE: 20191101
